FAERS Safety Report 8797457 (Version 3)
Quarter: 2012Q4

REPORT INFORMATION
  Report Type: 
  Country: US (occurrence: US)
  Receive Date: 20120920
  Receipt Date: 20121109
  Transmission Date: 20130627
  Serious: No
  Sender: FDA-Public Use
  Company Number: US-PFIZER INC-2012229341

PATIENT
  Age: 48 Year
  Sex: Female

DRUGS (15)
  1. GENOTROPIN [Suspect]
     Dosage: 0.4 mg, daily
     Route: 058
     Dates: start: 2012
  2. GENOTROPIN [Suspect]
     Dosage: 0.2 mg, daily
     Route: 058
     Dates: start: 20121004
  3. ALIGN [Concomitant]
     Dosage: 4 mg, UNK
  4. BIOTIN [Concomitant]
     Dosage: 10 mg, UNK
  5. CALCIUM 500+D [Concomitant]
     Dosage: UNK
  6. DEPLIN [Concomitant]
     Dosage: 15 mg, UNK
  7. DESMOPRESSIN [Concomitant]
     Dosage: 0.1 mg, UNK
  8. HYDROCORT [Concomitant]
     Dosage: 5 mg, UNK
  9. LEVOTHYROXINE [Concomitant]
     Dosage: 75 ug, UNK
  10. MULTIVITAMINS [Concomitant]
     Dosage: UNK
  11. TAMOXIFEN [Concomitant]
     Dosage: 20 mg, UNK
  12. FISH OIL [Concomitant]
     Dosage: UNK
  13. ALLEGRA [Concomitant]
     Dosage: 180 mg, UNK
  14. FLUOXETINE [Concomitant]
     Dosage: 20 mg, UNK
  15. DHEA [Concomitant]
     Dosage: 10 mg, UNK

REACTIONS (4)
  - Carpal tunnel syndrome [Unknown]
  - Injection site pain [Unknown]
  - Hot flush [Recovering/Resolving]
  - Fatigue [Not Recovered/Not Resolved]
